FAERS Safety Report 9546880 (Version 2)
Quarter: 2013Q3

REPORT INFORMATION
  Report Type: Spontaneous
  Country: US (occurrence: None)
  Receive Date: 20130606
  Receipt Date: 20130906
  Transmission Date: 20140515
  Serious: No
  Sender: FDA-Public Use
  Company Number: 163-POMAL-13043246

PATIENT
  Age: 70 Year
  Sex: Female

DRUGS (9)
  1. POMALYST [Suspect]
     Indication: PLASMA CELL MYELOMA
     Dosage: 21 IN 28 D
     Route: 048
     Dates: start: 20130228
  2. NORVASC(AMLODIPINE BESILATE) [Concomitant]
  3. DIFLUCAN(FLUCONAZOLE) [Concomitant]
  4. LASIX(FUROSEMIDE) [Concomitant]
  5. LOPRESSOR(METOPROLOL TARTRATE) [Concomitant]
  6. PRILOSEC(OMEPRAZOLE) [Concomitant]
  7. (BACTRIM)(BACTRIM) [Concomitant]
  8. FOLIC ACID(FOLIC ACID) [Concomitant]
  9. ACYCLOVIR(ACICLOVIR) [Concomitant]

REACTIONS (3)
  - Alopecia [None]
  - Diarrhoea [None]
  - Pruritus [None]
